FAERS Safety Report 20876341 (Version 6)
Quarter: 2025Q4

REPORT INFORMATION
  Report Type: Report from Study
  Country: JP (occurrence: JP)
  Receive Date: 20220526
  Receipt Date: 20251107
  Transmission Date: 20260117
  Serious: Yes (Death, Hospitalization, Other)
  Sender: BRISTOL-MYERS SQUIBB COMPANY
  Company Number: JP-BRISTOL-MYERS SQUIBB COMPANY-BMS-2021-087713

PATIENT
  Age: 73 Year
  Sex: Male
  Weight: 52 kg

DRUGS (4)
  1. YERVOY [Suspect]
     Active Substance: IPILIMUMAB
     Indication: Non-small cell lung cancer recurrent
     Dosage: 1 MG/KG, Q6W
     Route: 041
     Dates: start: 20210615, end: 20210615
  2. OPDIVO [Suspect]
     Active Substance: NIVOLUMAB
     Indication: Non-small cell lung cancer recurrent
     Dosage: 360 MG, Q3W
     Route: 041
     Dates: start: 20210615, end: 20210615
  3. CARBOPLATIN [Suspect]
     Active Substance: CARBOPLATIN
     Indication: Non-small cell lung cancer recurrent
     Dosage: Q3W
     Dates: start: 20210615, end: 20210615
  4. PACLITAXEL [Suspect]
     Active Substance: PACLITAXEL
     Indication: Non-small cell lung cancer recurrent
     Dosage: Q3W
     Dates: start: 20210615, end: 20210615

REACTIONS (3)
  - Immune-mediated lung disease [Fatal]
  - Neutrophil count decreased [Recovered/Resolved]
  - Non-small cell lung cancer [Unknown]

NARRATIVE: CASE EVENT DATE: 20210621
